FAERS Safety Report 10907256 (Version 1)
Quarter: 2015Q1

REPORT INFORMATION
  Report Type: Spontaneous
  Country: None (occurrence: None)
  Receive Date: 20150309
  Receipt Date: 20150309
  Transmission Date: 20150721
  Serious: Yes (Hospitalization)
  Sender: FDA-Public Use
  Company Number: None

PATIENT
  Age: 58 Year
  Sex: Male
  Weight: 93.5 kg

DRUGS (6)
  1. CARVEDILOL. [Suspect]
     Active Substance: CARVEDILOL
     Indication: LOW DENSITY LIPOPROTEIN ABNORMAL
     Dates: start: 20150111, end: 20150127
  2. CARVEDILOL. [Suspect]
     Active Substance: CARVEDILOL
     Indication: CORONARY ARTERY BYPASS
     Dates: start: 20150111, end: 20150127
  3. ATORVASTATIN [Suspect]
     Active Substance: ATORVASTATIN
     Indication: CORONARY ARTERY BYPASS
     Dates: start: 20141219, end: 20150127
  4. ATORVASTATIN [Suspect]
     Active Substance: ATORVASTATIN
     Indication: POSTOPERATIVE CARE
     Dates: start: 20141219, end: 20150127
  5. ATORVASTATIN [Suspect]
     Active Substance: ATORVASTATIN
     Indication: LOW DENSITY LIPOPROTEIN ABNORMAL
     Dates: start: 20141219, end: 20150127
  6. CARVEDILOL. [Suspect]
     Active Substance: CARVEDILOL
     Dates: start: 20150111, end: 20150127

REACTIONS (2)
  - Stevens-Johnson syndrome [None]
  - Rash [None]

NARRATIVE: CASE EVENT DATE: 20150122
